FAERS Safety Report 7942151-0 (Version None)
Quarter: 2011Q4

REPORT INFORMATION
  Report Type: 
  Country: None (occurrence: None)
  Receive Date: 20111123
  Receipt Date: 20111123
  Transmission Date: 20120403
  Serious: Yes (Life-Threatening, Hospitalization, Disabling)
  Sender: FDA-Public Use
  Company Number: None

PATIENT
  Sex: Female
  Weight: 98.8842 kg

DRUGS (4)
  1. INVEGA SUSTENNA [Suspect]
     Indication: PARANOIA
     Dosage: 156 MG + 6 MG 1-2 INJECTIONS TWICE MONTHLY
     Dates: start: 20110407
  2. INVEGA SUSTENNA [Suspect]
     Indication: CEREBRAL DISORDER
     Dosage: 156 MG + 6 MG 1-2 INJECTIONS TWICE MONTHLY
     Dates: start: 20110407
  3. RISPERDAL CONSTA [Suspect]
     Indication: PARANOIA
     Dosage: TWICE MONTHLY
     Dates: start: 20100127
  4. RISPERDAL CONSTA [Suspect]
     Indication: CEREBRAL DISORDER
     Dosage: TWICE MONTHLY
     Dates: start: 20100127

REACTIONS (14)
  - MYALGIA [None]
  - MASS [None]
  - UNEVALUABLE EVENT [None]
  - DIZZINESS [None]
  - GASTROOESOPHAGEAL REFLUX DISEASE [None]
  - WEIGHT INCREASED [None]
  - HUNGER [None]
  - PAIN IN EXTREMITY [None]
  - VAGINAL HAEMORRHAGE [None]
  - URETHRAL HAEMORRHAGE [None]
  - DIABETES MELLITUS [None]
  - HYPERTENSION [None]
  - VOMITING [None]
  - PYREXIA [None]
